FAERS Safety Report 9981451 (Version 1)
Quarter: 2014Q1

REPORT INFORMATION
  Report Type: Spontaneous
  Country: US (occurrence: None)
  Receive Date: 20140306
  Receipt Date: 20140306
  Transmission Date: 20141002
  Serious: Yes (Disabling)
  Sender: FDA-Public Use
  Company Number: None

PATIENT
  Age: 51 Year
  Sex: Female
  Weight: 49.9 kg

DRUGS (1)
  1. BUPROPION HCL XL [Suspect]
     Indication: MAJOR DEPRESSION
     Dosage: TAKEN BY MOUTH
     Dates: start: 20131115, end: 20131201

REACTIONS (3)
  - Depression [None]
  - Product substitution issue [None]
  - Suicidal ideation [None]
